FAERS Safety Report 9924501 (Version 4)
Quarter: 2014Q2

REPORT INFORMATION
  Report Type: Spontaneous
  Country: ES (occurrence: None)
  Receive Date: 20140220
  Receipt Date: 20140508
  Transmission Date: 20141212
  Serious: Yes (Other)
  Sender: FDA-Public Use
  Company Number: AUR-APL-2014-01706

PATIENT
  Age: 57 Year
  Sex: Female

DRUGS (2)
  1. LAMOTRIGINE [Suspect]
     Indication: CONVULSION PROPHYLAXIS
     Dosage: 200MG (100MG, 2 IN 1 D)
     Dates: start: 2009
  2. ANDREWS LIVER SALTS [Suspect]
     Indication: CONVULSION

REACTIONS (5)
  - Therapeutic response changed [None]
  - Hyperaemia [None]
  - Fall [None]
  - Convulsion [None]
  - Drug ineffective [None]
